FAERS Safety Report 15211271 (Version 1)
Quarter: 2018Q3

REPORT INFORMATION
  Report Type: Spontaneous
  Country: US (occurrence: US)
  Receive Date: 20180629
  Receipt Date: 20180629
  Transmission Date: 20181010
  Serious: No
  Sender: FDA-Public Use
  Company Number: None

PATIENT

DRUGS (1)
  1. ONDANSETRON 4MG [Suspect]
     Active Substance: ONDANSETRON

REACTIONS (3)
  - Injury associated with device [None]
  - Device breakage [None]
  - Laceration [None]

NARRATIVE: CASE EVENT DATE: 20180626
